FAERS Safety Report 5099615-X (Version None)
Quarter: 2006Q3

REPORT INFORMATION
  Report Type: 
  Country: None (occurrence: None)
  Receive Date: 20060908
  Receipt Date: 20060523
  Transmission Date: 20061208
  Serious: Yes (Hospitalization, Other)
  Sender: FDA-Public Use
  Company Number: 2006UW10048

PATIENT
  Age: 56 Year
  Sex: Female
  Weight: 129.1 kg

DRUGS (16)
  1. SEROQUEL [Suspect]
     Indication: BIPOLAR DISORDER
     Dosage: GIVEN IN DIVIDED DOSES
     Route: 048
     Dates: start: 20010605
  2. DARVOCET [Concomitant]
     Route: 048
  3. DARVOCET [Concomitant]
     Route: 048
  4. PROTONIX [Concomitant]
     Route: 048
  5. FERREX [Concomitant]
     Route: 048
  6. CLONAZEPAM [Concomitant]
     Route: 048
  7. ULTRAM [Concomitant]
     Route: 048
  8. LASIX [Concomitant]
     Route: 048
  9. LEVAQUIN [Concomitant]
     Route: 048
  10. TRAZODONE HCL [Concomitant]
     Route: 048
  11. CELEXA [Concomitant]
     Route: 048
  12. LEVOXYL [Concomitant]
     Route: 048
  13. CALCITRIOL [Concomitant]
     Route: 048
  14. IMIPRAMINE [Concomitant]
     Route: 048
  15. MUCINEX [Concomitant]
     Route: 048
  16. MIDODRINE HYDROCHLORIDE [Concomitant]
     Route: 048

REACTIONS (3)
  - CARDIOMEGALY [None]
  - PANCYTOPENIA [None]
  - RENAL FAILURE CHRONIC [None]
